FAERS Safety Report 8459925-2 (Version None)
Quarter: 2012Q2

REPORT INFORMATION
  Report Type: 
  Country: None (occurrence: None)
  Receive Date: 20120622
  Receipt Date: 20120619
  Transmission Date: 20120825
  Serious: Yes (Hospitalization, Other)
  Sender: FDA-Public Use
  Company Number: PHHY2012FR047480

PATIENT
  Sex: Male
  Weight: 100 kg

DRUGS (7)
  1. AMLODIPINE [Concomitant]
     Indication: HYPERTENSION
     Dates: start: 20110501, end: 20110601
  2. BISOPROLOL FUMARATE [Concomitant]
     Indication: CARDIAC FAILURE
     Dates: start: 20110519
  3. CALDINE [Concomitant]
     Indication: HYPERTENSION
     Dates: start: 20111122
  4. CRESTOR [Concomitant]
     Indication: HYPERCHOLESTEROLAEMIA
     Dates: start: 20110519
  5. RASILEZ HCT [Suspect]
     Indication: HYPERTENSION
     Dosage: 1 DF, DAILY
     Dates: start: 20110501
  6. LOSARTAN POTASSIUM AND HYDROCHLOROTHIAZIDE [Concomitant]
  7. ASPEGIC 1000 [Concomitant]
     Indication: CEREBROVASCULAR ACCIDENT
     Dates: start: 20110718

REACTIONS (3)
  - GYNAECOMASTIA [None]
  - MASTITIS [None]
  - PAIN [None]
